FAERS Safety Report 5459988-2 (Version None)
Quarter: 2007Q3

REPORT INFORMATION
  Report Type: 
  Country: None (occurrence: None)
  Receive Date: 20070919
  Receipt Date: 20070504
  Transmission Date: 20080115
  Serious: No
  Sender: FDA-Public Use
  Company Number: US-ASTRAZENECA-2007UW09588

PATIENT

DRUGS (2)
  1. SEROQUEL [Suspect]
     Route: 048
  2. MULTIPLE UNSPECIFIED MEDICATONS [Concomitant]

REACTIONS (3)
  - ILL-DEFINED DISORDER [None]
  - PAROSMIA [None]
  - VISUAL DISTURBANCE [None]
